FAERS Safety Report 9857351 (Version 3)
Quarter: 2014Q4

REPORT INFORMATION
  Report Type: Spontaneous
  Country: FR (occurrence: FR)
  Receive Date: 20140130
  Receipt Date: 20141029
  Transmission Date: 20150529
  Serious: Yes (Hospitalization, Other)
  Sender: FDA-Public Use
  Company Number: FR-JNJFOC-20140116293

PATIENT
  Age: 26 Year
  Sex: Male

DRUGS (8)
  1. IBUPROFEN. [Suspect]
     Active Substance: IBUPROFEN
     Indication: EYE PAIN
     Route: 065
     Dates: start: 20131027
  2. NASONEX [Concomitant]
     Active Substance: MOMETASONE FUROATE
     Indication: SINUSITIS
     Route: 065
     Dates: start: 20131113
  3. VOLTARENE [Concomitant]
     Active Substance: DICLOFENAC SODIUM
     Indication: BACK PAIN
     Route: 065
     Dates: start: 20131113
  4. MYOPLEGE [Concomitant]
     Indication: BACK PAIN
     Route: 065
     Dates: start: 20131113
  5. DAFALGAN CODEINE [Suspect]
     Active Substance: ACETAMINOPHEN\CODEINE PHOSPHATE
     Indication: EYE PAIN
     Route: 048
     Dates: start: 20131027
  6. ORELOX [Suspect]
     Active Substance: CEFPODOXIME
     Indication: SINUSITIS
     Route: 048
     Dates: start: 20131023
  7. DETURGYLONE [Suspect]
     Active Substance: OXYMETAZOLINE HYDROCHLORIDE\PREDNISOLONE SODIUM PHOSPHATE
     Indication: SINUSITIS
     Route: 065
     Dates: start: 20131023
  8. TEGRETOL [Suspect]
     Active Substance: CARBAMAZEPINE
     Indication: PAIN
     Route: 065
     Dates: start: 20131030, end: 20131113

REACTIONS (19)
  - Odynophagia [Recovered/Resolved]
  - Skin necrosis [Recovered/Resolved]
  - Pruritus [Recovered/Resolved]
  - Gingivitis [Recovered/Resolved]
  - Rash papular [Recovered/Resolved]
  - Pharyngitis [Recovered/Resolved]
  - Toxic skin eruption [Recovered/Resolved]
  - Tachycardia [Recovered/Resolved]
  - Antinuclear antibody positive [Unknown]
  - C-reactive protein increased [Recovered/Resolved]
  - Conjunctivitis [Recovered/Resolved]
  - Tonsillitis [Recovered/Resolved]
  - Urticaria [Recovered/Resolved]
  - Blood pressure increased [Recovered/Resolved]
  - Pyrexia [Recovered/Resolved]
  - Mouth ulceration [Recovered/Resolved]
  - Herpes virus infection [Recovered/Resolved]
  - Rash erythematous [Recovered/Resolved]
  - Epstein-Barr virus infection [Recovered/Resolved]

NARRATIVE: CASE EVENT DATE: 20131113
